FAERS Safety Report 8995153 (Version 1)
Quarter: 2012Q4

REPORT INFORMATION
  Report Type: Spontaneous
  Country: US (occurrence: None)
  Receive Date: 20121228
  Receipt Date: 20121228
  Transmission Date: 20130627
  Serious: No
  Sender: FDA-Public Use
  Company Number: None

PATIENT
  Age: 63 Year
  Sex: Male
  Weight: 107.3 kg

DRUGS (1)
  1. HYDROCORTISONE\NEOMYCIN\POLYMYXIN B [Suspect]
     Dosage: EAR
     Dates: start: 20120806, end: 20121031

REACTIONS (5)
  - Treatment failure [None]
  - Urticaria [None]
  - Pruritus [None]
  - Otorrhoea [None]
  - Ear discomfort [None]
